FAERS Safety Report 22775073 (Version 2)
Quarter: 2023Q4

REPORT INFORMATION
  Report Type: Spontaneous
  Country: US (occurrence: US)
  Receive Date: 20230802
  Receipt Date: 20231102
  Transmission Date: 20240110
  Serious: No
  Sender: FDA-Public Use
  Company Number: US-OYSTER POINT PHARMA, INC-US-OYS-23-000649

PATIENT
  Sex: Female

DRUGS (1)
  1. TYRVAYA [Suspect]
     Active Substance: VARENICLINE TARTRATE
     Indication: Dry eye
     Dosage: UNK, BID
     Route: 045
     Dates: start: 20230606, end: 2023

REACTIONS (6)
  - Cough [Unknown]
  - Sneezing [Unknown]
  - Exposure via ingestion [Unknown]
  - Product delivery mechanism issue [Unknown]
  - Device difficult to use [Unknown]
  - Therapy cessation [Unknown]
